FAERS Safety Report 9482672 (Version 1)
Quarter: 2013Q3

REPORT INFORMATION
  Report Type: Spontaneous
  Country: CN (occurrence: CN)
  Receive Date: 20130828
  Receipt Date: 20130828
  Transmission Date: 20140515
  Serious: Yes (Other)
  Sender: FDA-Public Use
  Company Number: CN-BAYER-2013-098728

PATIENT
  Age: 37 Year
  Sex: Female

DRUGS (9)
  1. NIFEDIPINE [Suspect]
     Indication: TOCOLYSIS
  2. MAGNESIUM SULFATE [Concomitant]
     Indication: TOCOLYSIS
  3. CEFTRIAXONE [Concomitant]
     Indication: ANTIBIOTIC PROPHYLAXIS
     Dosage: UNK
  4. METRONIDAZOLE [Concomitant]
     Indication: ANTIBIOTIC PROPHYLAXIS
  5. DEXAMETHASONE [Concomitant]
     Dosage: 2 COURSES
  6. ERYTHROMYCIN [Concomitant]
     Indication: UREAPLASMA INFECTION
     Dosage: UNK
     Route: 042
  7. ERYTHROMYCIN [Concomitant]
     Indication: UREAPLASMA INFECTION
     Dosage: UNK
     Route: 048
  8. ATOSIBAN [Concomitant]
     Indication: UTERINE CONTRACTIONS DURING PREGNANCY
     Dosage: UNK
  9. ATOSIBAN [Concomitant]
     Indication: UTERINE CONTRACTIONS DURING PREGNANCY

REACTIONS (4)
  - Premature rupture of membranes [None]
  - Uterine contractions during pregnancy [None]
  - Exposure during pregnancy [None]
  - Off label use [None]
